FAERS Safety Report 8571107-2 (Version None)
Quarter: 2012Q3

REPORT INFORMATION
  Report Type: 
  Country: None (occurrence: None)
  Receive Date: 20120806
  Receipt Date: 20120731
  Transmission Date: 20120928
  Serious: No
  Sender: FDA-Public Use
  Company Number: US-PFIZER INC-2012174846

PATIENT
  Age: 37 Year
  Sex: Male

DRUGS (5)
  1. CELEXA [Suspect]
     Dosage: UNK
  2. PROTONIX [Suspect]
     Dosage: UNK
  3. DESMOPRESSIN ACETATE [Suspect]
     Dosage: UNK
  4. DDAVP [Suspect]
     Dosage: UNK
  5. AZULFIDINE [Suspect]
     Dosage: UNK

REACTIONS (1)
  - DRUG HYPERSENSITIVITY [None]
